FAERS Safety Report 9023716 (Version 2)
Quarter: 2013Q1

REPORT INFORMATION
  Report Type: Report from Study
  Country: US (occurrence: US)
  Receive Date: 20130121
  Receipt Date: 20130125
  Transmission Date: 20140127
  Serious: No
  Sender: FDA-Public Use
  Company Number: US-VERTEX PHARMACEUTICALS INC.-2013-000798

PATIENT
  Sex: Female
  Weight: 52 kg

DRUGS (8)
  1. VX-950 (TELAPREVIR) [Suspect]
     Indication: HEPATITIS C
     Dosage: 750 MG, TID
     Route: 048
     Dates: start: 2012
  2. RIBASPHERE [Suspect]
     Indication: HEPATITIS C
     Dosage: 600 MG, BID
     Route: 048
     Dates: start: 2012
  3. PEGASYS [Suspect]
     Indication: HEPATITIS C
     Dosage: 180 ?G, QW
     Route: 058
     Dates: start: 2012
  4. LISINOPRIL + HIDROCLOROTIAZID [Concomitant]
     Dosage: UNK, QD
  5. ALPRAZOLAM [Concomitant]
     Dosage: 1 MG, PRN
  6. ZANAFLEX [Concomitant]
     Dosage: 4 MG, PRN
  7. PRILOSEC                           /00661201/ [Concomitant]
     Dosage: 20 MG, QD
  8. ASPIRIN E.C [Concomitant]
     Dosage: 81 MG, QD

REACTIONS (3)
  - Insomnia [Unknown]
  - Drug intolerance [Unknown]
  - Nausea [Unknown]
